FAERS Safety Report 4487380-6 (Version None)
Quarter: 2004Q3

REPORT INFORMATION
  Report Type: 
  Country: None (occurrence: None)
  Receive Date: 20040921
  Receipt Date: 20040430
  Transmission Date: 20050211
  Serious: Yes (Hospitalization)
  Sender: FDA-Public Use
  Company Number: 163-20785-04050010

PATIENT
  Age: 71 Year
  Sex: Male
  Weight: 106.5953 kg

DRUGS (7)
  1. THALOMID [Suspect]
     Indication: PROSTATE CANCER
     Dosage: 200 MG, Q.H.S., ORAL; 400 MG, Q.H.S., ORAL
     Route: 048
     Dates: start: 20030513, end: 20040302
  2. THALOMID [Suspect]
     Indication: PROSTATE CANCER
     Dosage: 200 MG, Q.H.S., ORAL; 400 MG, Q.H.S., ORAL
     Route: 048
     Dates: start: 20040303, end: 20040429
  3. LASIX [Concomitant]
  4. MICRO-K (POTASSIUM CHLORIDE) [Concomitant]
  5. GLUCOTROL [Concomitant]
  6. FERROUS SULFATE TAB [Concomitant]
  7. ASPIRIN [Concomitant]

REACTIONS (3)
  - DYSPNOEA [None]
  - MUSCULAR WEAKNESS [None]
  - PULMONARY EMBOLISM [None]
